FAERS Safety Report 6730656-X (Version None)
Quarter: 2010Q2

REPORT INFORMATION
  Report Type: 
  Country: None (occurrence: None)
  Receive Date: 20100514
  Receipt Date: 20100430
  Transmission Date: 20101027
  Serious: Yes (Other)
  Sender: FDA-Public Use
  Company Number: 8047909

PATIENT
  Sex: Female
  Weight: 78.5 kg

DRUGS (9)
  1. CERTOLIZUMAB PEGOL (CERTOLIZUMAB PEGOL) [Suspect]
     Indication: RHEUMATOID ARTHRITIS
     Dosage: (200 MG 1X/2 WEEKS SUBCUTANEOUS), (400 MG 1X/2 WEEKS SUBCUTANEOUS),
     Route: 058
     Dates: start: 20051220, end: 20060606
  2. CERTOLIZUMAB PEGOL (CERTOLIZUMAB PEGOL) [Suspect]
     Indication: RHEUMATOID ARTHRITIS
     Dosage: (200 MG 1X/2 WEEKS SUBCUTANEOUS), (400 MG 1X/2 WEEKS SUBCUTANEOUS),
     Route: 058
     Dates: start: 20060606, end: 20071204
  3. CERTOLIZUMAB PEGOL (CERTOLIZUMAB PEGOL) [Suspect]
     Indication: RHEUMATOID ARTHRITIS
     Dosage: (200 MG 1X/2 WEEKS SUBCUTANEOUS), (400 MG 1X/2 WEEKS SUBCUTANEOUS),
     Route: 058
     Dates: start: 20071218, end: 20090617
  4. METHOTREXATE [Concomitant]
  5. CELECOXIB [Concomitant]
  6. METHYLPREDNISOLONE 4MG TAB [Concomitant]
  7. CALCIGRAN /00434901/ [Concomitant]
  8. NOLIPREL /01553501/ [Concomitant]
  9. METOPROLOL [Concomitant]

REACTIONS (4)
  - BRONCHITIS [None]
  - CONDITION AGGRAVATED [None]
  - PYELONEPHRITIS ACUTE [None]
  - TUBERCULOSIS [None]
